FAERS Safety Report 17890204 (Version 6)
Quarter: 2020Q3

REPORT INFORMATION
  Report Type: Spontaneous
  Country: GB (occurrence: GB)
  Receive Date: 20200612
  Receipt Date: 20200722
  Transmission Date: 20201103
  Serious: Yes (Other)
  Sender: FDA-Public Use
  Company Number: GB-009507513-2006GBR004411

PATIENT
  Age: 28 Year
  Sex: Female

DRUGS (1)
  1. NEXPLANON [Suspect]
     Active Substance: ETONOGESTREL
     Dosage: 1 IMPLANT, IN THE LEFT UPPER ARM
     Route: 059
     Dates: start: 201810

REACTIONS (9)
  - Complication associated with device [Not Recovered/Not Resolved]
  - Implant site scar [Unknown]
  - Complication of device removal [Not Recovered/Not Resolved]
  - Pregnancy with implant contraceptive [Not Recovered/Not Resolved]
  - Implant site infection [Recovered/Resolved]
  - Amenorrhoea [Unknown]
  - Body mass index increased [Unknown]
  - Device issue [Not Recovered/Not Resolved]
  - Unintended pregnancy [Not Recovered/Not Resolved]

NARRATIVE: CASE EVENT DATE: 2018
